FAERS Safety Report 5588361-1 (Version None)
Quarter: 2008Q1

REPORT INFORMATION
  Report Type: 
  Country: None (occurrence: None)
  Receive Date: 20080111
  Receipt Date: 20071008
  Transmission Date: 20080703
  Serious: No
  Sender: FDA-Public Use
  Company Number: A0686706A

PATIENT
  Sex: Male

DRUGS (2)
  1. TYKERB [Suspect]
     Indication: DRUG USE FOR UNKNOWN INDICATION
     Dosage: 1250MG UNKNOWN
     Route: 065
     Dates: start: 20071002
  2. TARCEVA [Concomitant]

REACTIONS (2)
  - DIARRHOEA [None]
  - FATIGUE [None]
